FAERS Safety Report 21359601 (Version 2)
Quarter: 2023Q2

REPORT INFORMATION
  Report Type: Spontaneous
  Country: US (occurrence: US)
  Receive Date: 20220921
  Receipt Date: 20230426
  Transmission Date: 20230722
  Serious: Yes (Hospitalization, Other)
  Sender: FDA-Public Use
  Company Number: US-PFIZER INC-202201110819

PATIENT
  Age: 69 Year
  Sex: Female
  Weight: 63.5 kg

DRUGS (6)
  1. ZYVOX [Suspect]
     Active Substance: LINEZOLID
     Indication: Wound
     Dosage: 600 MG, 2X/DAY
     Dates: start: 202209
  2. ZYVOX [Suspect]
     Active Substance: LINEZOLID
     Indication: Localised infection
  3. GABAPENTIN [Concomitant]
     Active Substance: GABAPENTIN
     Dosage: UNK
  4. HYDRALAZINE [Concomitant]
     Active Substance: HYDRALAZINE HYDROCHLORIDE
     Dosage: UNK
  5. METOPROLOL [Concomitant]
     Active Substance: METOPROLOL
     Dosage: UNK
  6. CLONIDINE [Concomitant]
     Active Substance: CLONIDINE
     Indication: Hypertension
     Dosage: UNK (OCCASIONALLY)

REACTIONS (6)
  - Sepsis [Recovered/Resolved]
  - Fall [Unknown]
  - Cellulitis [Not Recovered/Not Resolved]
  - Diabetes mellitus [Recovered/Resolved]
  - Skin ulcer [Not Recovered/Not Resolved]
  - Off label use [Unknown]
